FAERS Safety Report 10135896 (Version 1)
Quarter: 2014Q2

REPORT INFORMATION
  Report Type: Spontaneous
  Country: US (occurrence: US)
  Receive Date: 20140428
  Receipt Date: 20140428
  Transmission Date: 20141212
  Serious: No
  Sender: FDA-Public Use
  Company Number: US-009507513-1404USA006323

PATIENT
  Sex: Female

DRUGS (1)
  1. CLARITIN CHEWABLE TABLETS [Suspect]
     Indication: HYPERSENSITIVITY
     Dosage: UNKNOWN, A COUPLE TIMES AT NIGHT
     Route: 048

REACTIONS (3)
  - Drug effect delayed [Unknown]
  - Inappropriate schedule of drug administration [Unknown]
  - Off label use [Unknown]
